FAERS Safety Report 17806278 (Version 1)
Quarter: 2020Q2

REPORT INFORMATION
  Report Type: Spontaneous
  Country: US (occurrence: US)
  Receive Date: 20200519
  Receipt Date: 20200519
  Transmission Date: 20200714
  Serious: Yes (Life-Threatening, Disabling)
  Sender: FDA-Public Use
  Company Number: None

PATIENT
  Age: 81 Year
  Sex: Male
  Weight: 61.23 kg

DRUGS (14)
  1. TIMOLOL. [Concomitant]
     Active Substance: TIMOLOL
  2. FINASTERIDE. [Concomitant]
     Active Substance: FINASTERIDE
  3. HYDRALAZINE [Concomitant]
     Active Substance: HYDRALAZINE HYDROCHLORIDE
  4. TIMOLOL. [Concomitant]
     Active Substance: TIMOLOL
  5. METRONIDAZOLE 500MG [Suspect]
     Active Substance: METRONIDAZOLE
  6. ATORVASTATIN [Concomitant]
     Active Substance: ATORVASTATIN
  7. TETRACYCLINE 500MG 4 X DAY FOR 10 DAYS [Suspect]
     Active Substance: TETRACYCLINE
     Indication: EXTRANODAL MARGINAL ZONE B-CELL LYMPHOMA (MALT TYPE)
     Dosage: ?          QUANTITY:2 DF DOSAGE FORM;?
     Route: 048
     Dates: start: 20200110, end: 20200120
  8. LEVOTHYROXINE. [Concomitant]
     Active Substance: LEVOTHYROXINE
  9. LATANOPROST. [Concomitant]
     Active Substance: LATANOPROST
  10. BENAZEPRIL [Concomitant]
     Active Substance: BENAZEPRIL HYDROCHLORIDE
  11. OMPERAZOLE [Concomitant]
     Active Substance: OMEPRAZOLE
  12. MELATOIN [Concomitant]
  13. TETRACYCLINE 500MG 4 X DAY FOR 10 DAYS [Suspect]
     Active Substance: TETRACYCLINE
     Indication: HELICOBACTER INFECTION
     Dosage: ?          QUANTITY:2 DF DOSAGE FORM;?
     Route: 048
     Dates: start: 20200110, end: 20200120
  14. TYLENOL [Concomitant]
     Active Substance: ACETAMINOPHEN

REACTIONS (14)
  - Asthenia [None]
  - Pneumonia [None]
  - Pulmonary congestion [None]
  - Lip blister [None]
  - Decreased appetite [None]
  - Hyperhidrosis [None]
  - Weight abnormal [None]
  - Recalled product [None]
  - Stomatitis [None]
  - Dyspnoea [None]
  - Weight decreased [None]
  - Pulmonary thrombosis [None]
  - Thirst [None]
  - Neoplasm malignant [None]

NARRATIVE: CASE EVENT DATE: 20200112
